FAERS Safety Report 19360708 (Version 3)
Quarter: 2022Q2

REPORT INFORMATION
  Report Type: Report from Study
  Country: US (occurrence: None)
  Receive Date: 20210602
  Receipt Date: 20220615
  Transmission Date: 20220721
  Serious: No
  Sender: FDA-Public Use
  Company Number: US-MDD US OPERATIONS-MDD202104-000625

PATIENT
  Age: 78 Year
  Sex: Male

DRUGS (9)
  1. APOKYN [Suspect]
     Active Substance: APOMORPHINE HYDROCHLORIDE
     Indication: Parkinson^s disease
     Route: 058
     Dates: start: 20201118
  2. APOKYN [Suspect]
     Active Substance: APOMORPHINE HYDROCHLORIDE
  3. AMLODIPINE [Concomitant]
     Active Substance: AMLODIPINE BESYLATE
     Indication: Hypertension
  4. TIGAN [Concomitant]
     Active Substance: TRIMETHOBENZAMIDE HYDROCHLORIDE
     Dates: end: 20210324
  5. NEUPRO [Concomitant]
     Active Substance: ROTIGOTINE
     Indication: Parkinson^s disease
     Dosage: NOT PROVIDED
  6. SYNTHROID [Concomitant]
     Active Substance: LEVOTHYROXINE SODIUM
     Indication: Hypothyroidism
  7. CARBIDOPA\LEVODOPA [Concomitant]
     Active Substance: CARBIDOPA\LEVODOPA
     Indication: Parkinson^s disease
  8. LIPITOR [Concomitant]
     Active Substance: ATORVASTATIN CALCIUM
  9. TRAMADOL [Concomitant]
     Active Substance: TRAMADOL

REACTIONS (2)
  - Dizziness [Recovered/Resolved]
  - Blood pressure orthostatic [Recovered/Resolved]

NARRATIVE: CASE EVENT DATE: 20210330
